FAERS Safety Report 6468564-4 (Version None)
Quarter: 2009Q4

REPORT INFORMATION
  Report Type: 
  Country: None (occurrence: None)
  Receive Date: 20091203
  Receipt Date: 20091124
  Transmission Date: 20100525
  Serious: Yes (Hospitalization, Other)
  Sender: FDA-Public Use
  Company Number: US-JNJFOC-20090908135

PATIENT
  Sex: Male
  Weight: 101.61 kg

DRUGS (15)
  1. REMICADE [Suspect]
     Route: 042
  2. REMICADE [Suspect]
     Route: 042
  3. REMICADE [Suspect]
     Indication: RHEUMATOID ARTHRITIS
     Route: 042
  4. METHOTREXATE [Concomitant]
  5. OXYCODONE HCL [Concomitant]
  6. MORPHINE [Concomitant]
  7. DIOVAN [Concomitant]
     Indication: HYPERTENSION
  8. LASIX [Concomitant]
     Indication: CARDIAC FAILURE CONGESTIVE
  9. CARDIZEM [Concomitant]
     Indication: CARDIAC DISORDER
  10. PREDNISONE [Concomitant]
     Indication: RHEUMATOID ARTHRITIS
  11. LEUCOVORIN CALCIUM [Concomitant]
     Indication: RHEUMATOID ARTHRITIS
  12. METFORMIN HCL [Concomitant]
     Indication: DIABETES MELLITUS
  13. LYRICA [Concomitant]
     Indication: NEURALGIA
  14. BACLOFEN [Concomitant]
     Indication: MUSCLE SPASMS
  15. COUMADIN [Concomitant]
     Indication: DEEP VEIN THROMBOSIS

REACTIONS (4)
  - STAPHYLOCOCCAL INFECTION [None]
  - STREPTOCOCCAL INFECTION [None]
  - TENOSYNOVITIS [None]
  - WOUND INFECTION [None]
